FAERS Safety Report 15680331 (Version 1)
Quarter: 2018Q4

REPORT INFORMATION
  Report Type: Spontaneous
  Country: ES (occurrence: ES)
  Receive Date: 20181203
  Receipt Date: 20181203
  Transmission Date: 20190205
  Serious: Yes (Hospitalization, Other)
  Sender: FDA-Public Use
  Company Number: ES-PFIZER INC-2018491261

PATIENT
  Age: 67 Year
  Sex: Male

DRUGS (6)
  1. CAPOTEN [Concomitant]
     Active Substance: CAPTOPRIL
     Dosage: 25 MG, 2X/DAY
     Route: 048
  2. OMEPRAZOLE. [Concomitant]
     Active Substance: OMEPRAZOLE
     Dosage: UNK
  3. AZITHROMYCIN ANHYDROUS. [Suspect]
     Active Substance: AZITHROMYCIN ANHYDROUS
     Indication: NASAL OBSTRUCTION
     Dosage: 500 MG, 1X/DAY
     Route: 048
     Dates: start: 20180910, end: 20180911
  4. ADIRO [Concomitant]
     Active Substance: ASPIRIN
     Dosage: 300 MG, 1X/DAY
     Route: 048
  5. IBUPROFEN. [Concomitant]
     Active Substance: IBUPROFEN
     Dosage: 1-2 CAPSULES; DAILY IN THE LAST WEEK)
     Route: 048
  6. AZITHROMYCIN ANHYDROUS. [Suspect]
     Active Substance: AZITHROMYCIN ANHYDROUS
     Indication: NASAL POLYPS

REACTIONS (5)
  - Hypertension [Recovered/Resolved]
  - Drug hypersensitivity [Recovered/Resolved]
  - Chest pain [Recovered/Resolved]
  - Bradycardia [Recovered/Resolved]
  - Anaphylactic reaction [Recovered/Resolved]

NARRATIVE: CASE EVENT DATE: 20180910
